FAERS Safety Report 17849913 (Version 1)
Quarter: 2020Q2

REPORT INFORMATION
  Report Type: Not Available
  Country: DE (occurrence: DE)
  Receive Date: 20200602
  Receipt Date: 20200602
  Transmission Date: 20200714
  Serious: Yes (Other)
  Sender: FDA-Public Use
  Company Number: DE-SYNTHON BV-IN51PV20_53601

PATIENT
  Age: 81 Year
  Sex: Male

DRUGS (21)
  1. ASPIRIN. [Suspect]
     Active Substance: ASPIRIN
     Indication: PRODUCT USED FOR UNKNOWN INDICATION
     Dosage: 100 MG, QD (1-0-0)
     Dates: start: 2014
  2. AMLODIPINE [Suspect]
     Active Substance: AMLODIPINE BESYLATE
     Dosage: 5 MILLIGRAM, QD (IN THE EVENING)
  3. NOVORAPID [Suspect]
     Active Substance: INSULIN ASPART
     Dosage: IN THE MORNING, AT NOON AND IN THE EVENING BETWEEN 8 AND 40 IU BEFORE THE MEAL
     Route: 065
     Dates: start: 2012
  4. ENALAPRIL [Suspect]
     Active Substance: ENALAPRIL
     Indication: PRODUCT USED FOR UNKNOWN INDICATION
     Dosage: UNK
     Route: 065
  5. SIMVASTATIN. [Suspect]
     Active Substance: SIMVASTATIN
     Indication: PRODUCT USED FOR UNKNOWN INDICATION
     Dosage: 40 MG, QD IN THE EVENING
     Route: 065
     Dates: start: 2014
  6. VALSARTAN. [Suspect]
     Active Substance: VALSARTAN
     Indication: PRODUCT USED FOR UNKNOWN INDICATION
     Dosage: UNK
     Route: 065
     Dates: start: 20180903, end: 20181009
  7. PANTOPRAZOL [PANTOPRAZOLE] [Suspect]
     Active Substance: PANTOPRAZOLE
     Indication: PROPHYLAXIS AGAINST GASTROINTESTINAL ULCER
     Dosage: 40 MG, QD (IN THE MORNING)
     Route: 065
     Dates: start: 2018
  8. ALLOPURINOL. [Suspect]
     Active Substance: ALLOPURINOL
     Indication: PRODUCT USED FOR UNKNOWN INDICATION
     Dosage: 300 MG, QD (IN THE EVENING)
     Dates: start: 2014
  9. TORASEMID [Suspect]
     Active Substance: TORSEMIDE
     Indication: PRODUCT USED FOR UNKNOWN INDICATION
     Dosage: 20 MG, QD 1-1-0
     Route: 065
     Dates: start: 2012
  10. CALCITRIOL. [Concomitant]
     Active Substance: CALCITRIOL
     Indication: PRODUCT USED FOR UNKNOWN INDICATION
     Dosage: 0.25 MG, QD, EINNAHME ABENDS
     Dates: start: 2014
  11. CANDESARTAN ZENTIVA [Concomitant]
     Active Substance: CANDESARTAN CILEXETIL
     Indication: PRODUCT USED FOR UNKNOWN INDICATION
     Dosage: UNK
     Route: 065
  12. ALLOPURINOL. [Suspect]
     Active Substance: ALLOPURINOL
     Dosage: 100 MG, QD (IN THE MORNING)
     Dates: start: 2018
  13. TORASEMID [Suspect]
     Active Substance: TORSEMIDE
     Dosage: 40 MG, QD (20 IN THEMORNING, 20 IN THE EVENING)
     Dates: start: 2014
  14. LANTUS [Suspect]
     Active Substance: INSULIN GLARGINE
     Indication: PRODUCT USED FOR UNKNOWN INDICATION
     Dosage: 24 IU, QD (24 FOR THE NIGHT)
     Dates: start: 2018
  15. LANTUS [Suspect]
     Active Substance: INSULIN GLARGINE
     Dosage: 20 IU, QD 20 ZUR NACHT
     Dates: start: 2014
  16. AMLODIPINE [Suspect]
     Active Substance: AMLODIPINE BESYLATE
     Indication: PRODUCT USED FOR UNKNOWN INDICATION
     Dosage: 5 MG (12 HOUR)
     Route: 065
     Dates: start: 2014
  17. NOVAMINSULFON [Suspect]
     Active Substance: METAMIZOLE
     Indication: PRODUCT USED FOR UNKNOWN INDICATION
     Dosage: BEI BEDARF 2-3X TAGLICH 20-30 TROPFEN
     Route: 065
     Dates: start: 2014
  18. NOVORAPID [Suspect]
     Active Substance: INSULIN ASPART
     Indication: PRODUCT USED FOR UNKNOWN INDICATION
     Dosage: IN THE MORNING: 24,NOON: 18, IN THE EVENING: 20
     Route: 065
     Dates: start: 2014
  19. VALSARTAN. [Suspect]
     Active Substance: VALSARTAN
     Dosage: 160 MG, QD
     Route: 065
     Dates: start: 2014
  20. TAMSULOSIN [Suspect]
     Active Substance: TAMSULOSIN
     Indication: PRODUCT USED FOR UNKNOWN INDICATION
     Dosage: 0.4 MG, QD
     Route: 065
     Dates: start: 2014
  21. NOVORAPID [Suspect]
     Active Substance: INSULIN ASPART
     Dosage: IN THE MORNING: 24,NOON: 18, IN THE EVENING: 20
     Dates: start: 2018

REACTIONS (15)
  - Spinal pain [Unknown]
  - Dyspnoea exertional [Unknown]
  - Blood glucose increased [Unknown]
  - Muscle spasms [Unknown]
  - Chest discomfort [Unknown]
  - Skin haemorrhage [Unknown]
  - Dyspnoea [Unknown]
  - Nausea [Unknown]
  - Pelvic pain [Unknown]
  - Injection site swelling [Unknown]
  - Rectal tenesmus [Unknown]
  - Myalgia [Unknown]
  - Asthenia [Unknown]
  - Peripheral swelling [Unknown]
  - Morning sickness [Unknown]

NARRATIVE: CASE EVENT DATE: 201809
